FAERS Safety Report 11144260 (Version 2)
Quarter: 2015Q4

REPORT INFORMATION
  Report Type: Spontaneous
  Country: US (occurrence: US)
  Receive Date: 20150526
  Receipt Date: 20151105
  Transmission Date: 20160304
  Serious: Yes (Hospitalization, Other)
  Sender: FDA-Public Use
  Company Number: US-ASTRAZENECA-2015SE01739

PATIENT
  Age: 19098 Day
  Sex: Female
  Weight: 108.9 kg

DRUGS (15)
  1. METFORMIN [Concomitant]
     Active Substance: METFORMIN HYDROCHLORIDE
     Route: 065
  2. LOTRONEX [Concomitant]
     Active Substance: ALOSETRON HYDROCHLORIDE
     Indication: DUODENITIS
     Dosage: ONE OR TWO TIMES DAILY
  3. PRILOSEC [Suspect]
     Active Substance: OMEPRAZOLE MAGNESIUM
     Indication: DUODENITIS
     Route: 048
     Dates: start: 1990
  4. PRILOSEC [Suspect]
     Active Substance: OMEPRAZOLE MAGNESIUM
     Indication: DUODENAL ULCER
     Route: 048
     Dates: start: 1990
  5. CARAFATE [Concomitant]
     Active Substance: SUCRALFATE
     Dosage: ONE OR TWO TIMES DAILY
  6. NAPROXEN. [Concomitant]
     Active Substance: NAPROXEN
     Indication: JOINT INJURY
     Route: 065
  7. BYDUREON [Suspect]
     Active Substance: EXENATIDE
     Route: 058
  8. PEPCID [Concomitant]
     Active Substance: FAMOTIDINE
     Indication: DUODENITIS
     Route: 065
  9. NEXIUM [Suspect]
     Active Substance: ESOMEPRAZOLE MAGNESIUM
     Indication: GASTROOESOPHAGEAL REFLUX DISEASE
     Route: 048
  10. CRESTOR [Suspect]
     Active Substance: ROSUVASTATIN CALCIUM
     Route: 048
  11. PEPCID [Concomitant]
     Active Substance: FAMOTIDINE
     Indication: GASTRITIS
     Route: 065
  12. FARXIGA [Suspect]
     Active Substance: DAPAGLIFLOZIN PROPANEDIOL
     Indication: TYPE 2 DIABETES MELLITUS
     Route: 048
  13. PRILOSEC [Suspect]
     Active Substance: OMEPRAZOLE MAGNESIUM
     Indication: HELICOBACTER INFECTION
     Route: 048
     Dates: start: 1990
  14. PRILOSEC [Suspect]
     Active Substance: OMEPRAZOLE MAGNESIUM
     Indication: GASTRITIS
     Route: 048
     Dates: start: 1990
  15. LOTRONEX [Concomitant]
     Active Substance: ALOSETRON HYDROCHLORIDE
     Indication: GASTRITIS
     Dosage: ONE OR TWO TIMES DAILY

REACTIONS (11)
  - Fungal infection [Unknown]
  - Rash [Unknown]
  - Groin pain [Unknown]
  - Drug ineffective [Unknown]
  - Gastric disorder [Unknown]
  - Gastrooesophageal reflux disease [Unknown]
  - Road traffic accident [Unknown]
  - Duodenitis [Unknown]
  - Cartilage injury [Unknown]
  - Dyspepsia [Unknown]
  - Gastritis [Unknown]

NARRATIVE: CASE EVENT DATE: 20050701
